FAERS Safety Report 7068406-2 (Version None)
Quarter: 2010Q4

REPORT INFORMATION
  Report Type: 
  Country: None (occurrence: None)
  Receive Date: 20101028
  Receipt Date: 20101018
  Transmission Date: 20110411
  Serious: Yes (Hospitalization)
  Sender: FDA-Public Use
  Company Number: B0676357A

PATIENT
  Sex: Female
  Weight: 70 kg

DRUGS (3)
  1. LAPATINIB [Suspect]
     Indication: BREAST CANCER
     Dosage: 1500MG PER DAY
     Route: 048
     Dates: start: 20100823
  2. PACLITAXEL [Suspect]
     Indication: BREAST CANCER
     Dosage: 80MGM2 WEEKLY
     Route: 042
     Dates: start: 20100419, end: 20100705
  3. TRASTUZUMAB [Suspect]
     Indication: BREAST CANCER
     Dosage: 2MGK WEEKLY
     Route: 042
     Dates: start: 20100419, end: 20100705

REACTIONS (8)
  - DIARRHOEA [None]
  - DIZZINESS [None]
  - NAUSEA [None]
  - NYSTAGMUS [None]
  - STOMATITIS [None]
  - VESTIBULAR DISORDER [None]
  - VOMITING [None]
  - WEIGHT DECREASED [None]
